FAERS Safety Report 5237356-6 (Version None)
Quarter: 2007Q1

REPORT INFORMATION
  Report Type: 
  Country: None (occurrence: None)
  Receive Date: 20070213
  Receipt Date: 20070201
  Transmission Date: 20070707
  Serious: Yes (Other)
  Sender: FDA-Public Use
  Company Number: FR-NOVOPROD-260608

PATIENT
  Age: 72 Year
  Sex: Male
  Weight: 92 kg

DRUGS (10)
  1. NORDITROPIN SIMPLEXX [Suspect]
     Indication: GROWTH HORMONE DEFICIENCY
     Dosage: .4 MG, QD
     Route: 048
     Dates: start: 20030228, end: 20060502
  2. ANDROTARDYL [Concomitant]
     Indication: DRUG USE FOR UNKNOWN INDICATION
     Route: 058
     Dates: start: 20031110
  3. LEVOTHYROXINE SODIUM [Concomitant]
     Indication: DRUG USE FOR UNKNOWN INDICATION
     Dosage: 100 UG, QD
     Route: 048
     Dates: start: 20050309
  4. HYDROCORTISONE [Concomitant]
     Indication: DRUG USE FOR UNKNOWN INDICATION
     Dosage: 30 MG, QD
     Route: 048
     Dates: start: 20040524
  5. NORPROLAC [Concomitant]
     Indication: DRUG USE FOR UNKNOWN INDICATION
     Dosage: 75 UG, QD
     Route: 048
     Dates: start: 20050920
  6. TAREG [Concomitant]
     Indication: DRUG USE FOR UNKNOWN INDICATION
     Dosage: 80 MG, QD
     Route: 048
     Dates: start: 20040702
  7. KARDEGIC                           /00002703/ [Concomitant]
     Indication: DRUG USE FOR UNKNOWN INDICATION
     Dosage: 160 MG, QD
     Route: 048
     Dates: start: 19950101
  8. DIGITALINE NATIVELLE [Concomitant]
     Indication: DRUG USE FOR UNKNOWN INDICATION
     Dosage: .5 MG, QD
     Route: 048
     Dates: start: 19950101
  9. XATRAL                             /00975301/ [Concomitant]
     Indication: DRUG USE FOR UNKNOWN INDICATION
     Dosage: 10 MG, QD
     Route: 048
     Dates: start: 20050920
  10. VIOXX [Concomitant]
     Indication: DRUG USE FOR UNKNOWN INDICATION
     Dosage: 12.5 MG, QD
     Route: 048
     Dates: start: 20040906

REACTIONS (1)
  - VENTRICULAR HYPERTROPHY [None]
